FAERS Safety Report 23392178 (Version 3)
Quarter: 2024Q1

REPORT INFORMATION
  Report Type: Spontaneous
  Country: US (occurrence: US)
  Receive Date: 20240111
  Receipt Date: 20240112
  Transmission Date: 20240409
  Serious: No
  Sender: FDA-Public Use
  Company Number: US-PFIZER INC-PV202400003477

PATIENT
  Age: 7 Year
  Sex: Male
  Weight: 17.42 kg

DRUGS (1)
  1. LITFULO [Suspect]
     Active Substance: RITLECITINIB TOSYLATE
     Indication: Alopecia
     Dosage: 50 MILLIGRAMS, BY MOUTH, ONCE A DAY
     Route: 048

REACTIONS (2)
  - Dysphagia [Unknown]
  - Off label use [Unknown]
